FAERS Safety Report 7606894-0 (Version None)
Quarter: 2011Q3

REPORT INFORMATION
  Report Type: 
  Country: None (occurrence: None)
  Receive Date: 20110713
  Receipt Date: 20110707
  Transmission Date: 20111222
  Serious: Yes (Hospitalization)
  Sender: FDA-Public Use
  Company Number: CH-VIIV HEALTHCARE LIMITED-B0732617A

PATIENT
  Age: 19 Year
  Sex: Male
  Weight: 83 kg

DRUGS (13)
  1. NORVIR [Suspect]
     Indication: HIV INFECTION
     Dosage: 100MG PER DAY
     Route: 048
     Dates: start: 20110502
  2. DIDANOSINE [Concomitant]
  3. ABACAVIR SULFATE AND LAMIVUDINE [Suspect]
     Indication: HIV INFECTION
     Route: 048
     Dates: start: 20080801
  4. LAMIVUDINE + ZIDOVUDINE [Concomitant]
  5. NELFINAVIR MESYLATE [Concomitant]
  6. RITONAVIR [Concomitant]
  7. ZIDOVUDINE [Concomitant]
  8. CELSENTRI [Suspect]
     Indication: HIV INFECTION
     Dosage: 300MG PER DAY
     Route: 048
     Dates: start: 20110502
  9. STAVUDINE [Concomitant]
  10. ABACAVIR [Concomitant]
  11. PREZISTA [Suspect]
     Indication: HIV INFECTION
     Dosage: 600MG TWICE PER DAY
     Route: 048
     Dates: start: 20110502
  12. LOPINAVIR [Concomitant]
  13. EFAVIRENZ [Concomitant]

REACTIONS (4)
  - NEPHROLITHIASIS [None]
  - FLANK PAIN [None]
  - DRUG INTERACTION [None]
  - RENAL FAILURE ACUTE [None]
